FAERS Safety Report 18950708 (Version 1)
Quarter: 2021Q1

REPORT INFORMATION
  Report Type: Spontaneous
  Country: US (occurrence: US)
  Receive Date: 20210228
  Receipt Date: 20210228
  Transmission Date: 20210420
  Serious: No
  Sender: FDA-Public Use
  Company Number: US-ROCHE-2684614

PATIENT

DRUGS (3)
  1. XOLAIR [Suspect]
     Active Substance: OMALIZUMAB
  2. XOLAIR [Suspect]
     Active Substance: OMALIZUMAB
     Indication: PRODUCT USED FOR UNKNOWN INDICATION
     Route: 065
  3. XOLAIR [Suspect]
     Active Substance: OMALIZUMAB

REACTIONS (3)
  - Device connection issue [Unknown]
  - Needle issue [Unknown]
  - Pain [Unknown]
